FAERS Safety Report 15990697 (Version 2)
Quarter: 2019Q2

REPORT INFORMATION
  Report Type: Spontaneous
  Country: JP (occurrence: JP)
  Receive Date: 20190221
  Receipt Date: 20190523
  Transmission Date: 20190711
  Serious: Yes (Hospitalization, Other)
  Sender: FDA-Public Use
  Company Number: JP-ELI_LILLY_AND_COMPANY-JP201811010645

PATIENT
  Age: 60 Year
  Sex: Male

DRUGS (5)
  1. ERBITUX [Suspect]
     Active Substance: CETUXIMAB
     Indication: NASAL CAVITY CANCER
     Dosage: 400 MG/M2, UNKNOWN
     Route: 041
     Dates: start: 20180808, end: 20180808
  2. ERBITUX [Suspect]
     Active Substance: CETUXIMAB
     Dosage: 250 MG/M2, WEEKLY (1/W)
     Route: 041
     Dates: start: 2018
  3. CISPLATIN. [Concomitant]
     Active Substance: CISPLATIN
     Indication: NASAL CAVITY CANCER
     Dosage: UNK
  4. CARBOPLATIN. [Concomitant]
     Active Substance: CARBOPLATIN
     Indication: NASAL CAVITY CANCER
     Dosage: AUC4, ONCE IN THREE WEEKS
     Route: 041
     Dates: start: 20180808
  5. FLUOROURACIL. [Concomitant]
     Active Substance: FLUOROURACIL
     Indication: NASAL CAVITY CANCER
     Dosage: 800 MG/M2, ONCE IN THREE WEEKS
     Route: 041
     Dates: start: 20180808

REACTIONS (1)
  - Skin ulcer [Recovered/Resolved]

NARRATIVE: CASE EVENT DATE: 20180912
